FAERS Safety Report 24013288 (Version 1)
Quarter: 2024Q2

REPORT INFORMATION
  Report Type: Spontaneous
  Country: US (occurrence: US)
  Receive Date: 20240626
  Receipt Date: 20240626
  Transmission Date: 20240716
  Serious: Yes (Death)
  Sender: FDA-Public Use
  Company Number: US-ALKEM LABORATORIES LIMITED-US-ALKEM-2023-16627

PATIENT
  Age: 66 Year
  Sex: Female

DRUGS (1)
  1. AMLODIPINE BESYLATE [Suspect]
     Active Substance: AMLODIPINE BESYLATE
     Indication: Product used for unknown indication
     Dosage: UNK, BOTTLE ORIGINALLY CONTAINED 60 AML TABLETS FOUND EMPTY (DOSE UNSPECIFIED BY INVESTIGATOR)
     Route: 065

REACTIONS (1)
  - Overdose [Fatal]
